FAERS Safety Report 14110448 (Version 1)
Quarter: 2017Q4

REPORT INFORMATION
  Report Type: Spontaneous
  Country: US (occurrence: US)
  Receive Date: 20171020
  Receipt Date: 20171020
  Transmission Date: 20180321
  Serious: No
  Sender: FDA-Public Use
  Company Number: US-TEVA-801655USA

PATIENT
  Age: 44 Year
  Sex: Male

DRUGS (15)
  1. VITAMIN D3 [Concomitant]
     Active Substance: CHOLECALCIFEROL
  2. MOBIC [Concomitant]
     Active Substance: MELOXICAM
  3. TAB-A-VITE [Concomitant]
  4. CITALOPRAM HYDROBROMIDE. [Concomitant]
     Active Substance: CITALOPRAM HYDROBROMIDE
  5. ACETAMINOPHEN. [Concomitant]
     Active Substance: ACETAMINOPHEN
  6. ATIVAN [Concomitant]
     Active Substance: LORAZEPAM
  7. TRAZODONE HYDROCHLORIDE. [Concomitant]
     Active Substance: TRAZODONE HYDROCHLORIDE
  8. BACLOFEN. [Concomitant]
     Active Substance: BACLOFEN
  9. HALOPERIDOL. [Concomitant]
     Active Substance: HALOPERIDOL
  10. POLYETHYLENE GLYCOL 3350. [Concomitant]
     Active Substance: POLYETHYLENE GLYCOL 3350
  11. MELOXICAM. [Concomitant]
     Active Substance: MELOXICAM
  12. AUSTEDO [Suspect]
     Active Substance: DEUTETRABENAZINE
     Indication: HUNTINGTON^S DISEASE
     Dosage: 30 MILLIGRAM DAILY;
     Route: 048
     Dates: start: 20170808
  13. LORAZEPAM. [Concomitant]
     Active Substance: LORAZEPAM
  14. AUSTEDO [Suspect]
     Active Substance: DEUTETRABENAZINE
     Dosage: 36 MILLIGRAM DAILY; TWO 9MG IN THE MORNING AND TWO 9MG TABLETS IN THE EVENING
     Route: 048
  15. PROMISEB [Concomitant]
     Active Substance: DEVICE

REACTIONS (3)
  - Nausea [Unknown]
  - Vomiting [Recovered/Resolved]
  - Sedation [Unknown]

NARRATIVE: CASE EVENT DATE: 20170817
